FAERS Safety Report 8013034-5 (Version None)
Quarter: 2011Q4

REPORT INFORMATION
  Report Type: 
  Country: None (occurrence: None)
  Receive Date: 20111229
  Receipt Date: 20111228
  Transmission Date: 20120403
  Serious: Yes (Hospitalization)
  Sender: FDA-Public Use
  Company Number: CN-PFIZER INC-2011314478

PATIENT
  Sex: Female

DRUGS (3)
  1. LIPITOR [Suspect]
     Dosage: UNK
     Route: 048
     Dates: start: 20100101
  2. LIPITOR [Suspect]
     Dosage: 10 MG EVERY DAY
     Route: 048
  3. LIPITOR [Suspect]
     Dosage: 20 MG EVERY DAY
     Route: 048
     Dates: start: 20110101

REACTIONS (4)
  - HERPES ZOSTER [None]
  - HYPOAESTHESIA [None]
  - MUSCULOSKELETAL PAIN [None]
  - ANGINA PECTORIS [None]
